FAERS Safety Report 7516618-3 (Version None)
Quarter: 2011Q2

REPORT INFORMATION
  Report Type: 
  Country: None (occurrence: None)
  Receive Date: 20110601
  Receipt Date: 20110520
  Transmission Date: 20111010
  Serious: Yes (Other)
  Sender: FDA-Public Use
  Company Number: AR-AMGEN-ARGSP2011024900

PATIENT
  Age: 81 Year
  Sex: Female
  Weight: 67 kg

DRUGS (4)
  1. ENBREL [Suspect]
     Dosage: UNK
     Dates: end: 20110329
  2. ENBREL [Suspect]
     Dosage: UNK
     Dates: start: 20110414
  3. ALPRAZOLAM [Concomitant]
     Dosage: UNK
  4. ENBREL [Suspect]
     Indication: RHEUMATOID ARTHRITIS
     Dosage: 50 MG, WEEKLY
     Route: 058
     Dates: start: 20060101, end: 20110201

REACTIONS (2)
  - LOCALISED INFECTION [None]
  - FEMUR FRACTURE [None]
